FAERS Safety Report 15359120 (Version 6)
Quarter: 2018Q4

REPORT INFORMATION
  Report Type: Report from Study
  Country: JP (occurrence: JP)
  Receive Date: 20180907
  Receipt Date: 20181119
  Transmission Date: 20190204
  Serious: Yes (Hospitalization)
  Sender: FDA-Public Use
  Company Number: JP-AMGEN-JPNCT2018122831

PATIENT
  Age: 80 Year
  Sex: Female
  Weight: 54.2 kg

DRUGS (22)
  1. GENTAMICIN SULFATE. [Concomitant]
     Active Substance: GENTAMICIN SULFATE
     Dosage: 1 UNK, UNK
     Route: 061
     Dates: start: 201710
  2. ADALAT [Concomitant]
     Active Substance: NIFEDIPINE
     Dosage: 20 MG, UNK
     Route: 048
     Dates: start: 2007
  3. PRAVASTATIN NA [Concomitant]
     Active Substance: PRAVASTATIN SODIUM
     Dosage: 10 MG, UNK
     Route: 048
     Dates: start: 2009
  4. AZUNOL [Concomitant]
     Active Substance: SODIUM GUALENATE
     Dosage: 1 UNK, UNK
     Route: 061
     Dates: start: 201708
  5. LIVOSTIN [Concomitant]
     Active Substance: LEVOCABASTINE HYDROCHLORIDE
     Dosage: 1 GTT, UNK
     Route: 047
     Dates: start: 201804
  6. BILANOA [Concomitant]
     Active Substance: BILASTINE
     Dosage: 20 MG, UNK
     Route: 048
     Dates: start: 20180723
  7. OMEPRAZOLE. [Concomitant]
     Active Substance: OMEPRAZOLE
     Dosage: 10 MG, UNK
     Route: 048
     Dates: start: 201804
  8. NIFLAN [Concomitant]
     Active Substance: PRANOPROFEN
     Dosage: 1 GTT, UNK
     Route: 047
     Dates: start: 2009
  9. HYALEIN [Concomitant]
     Active Substance: HYALURONATE SODIUM
     Dosage: 1 GTT, UNK
     Route: 047
     Dates: start: 201702
  10. METHYCOBAL [Concomitant]
     Active Substance: METHYLCOBALAMIN
     Dosage: 500 MUG, UNK
     Route: 048
     Dates: start: 2015
  11. TEPRENONE [Concomitant]
     Active Substance: TEPRENONE
     Dosage: 50 MG, UNK
     Route: 048
     Dates: start: 2017
  12. THYRADIN-S [Concomitant]
     Active Substance: LEVOTHYROXINE
     Dosage: 100 MUG, UNK
     Route: 048
     Dates: start: 2011
  13. MAGMITT [Concomitant]
     Active Substance: MAGNESIUM OXIDE
     Dosage: 330 MG, UNK
     Route: 048
     Dates: start: 201706
  14. CALONAL [Concomitant]
     Active Substance: ACETAMINOPHEN
     Dosage: 400 MG, UNK
     Route: 048
     Dates: start: 201802
  15. RINDERON A [Concomitant]
     Active Substance: BETAMETHASONE SODIUM PHOSPHATE\NEOMYCIN SULFATE
     Dosage: 1 GTT, UNK
     Route: 047
     Dates: start: 201804
  16. LOXOPROFEN [Concomitant]
     Active Substance: LOXOPROFEN
     Dosage: 60 MG, UNK
     Route: 048
     Dates: start: 2017
  17. RESTAMIN [Concomitant]
     Active Substance: DIPHENHYDRAMINE
     Dosage: 1 UNK, UNK
     Route: 061
     Dates: start: 20180709
  18. TALIMOGENE LAHERPAREPVEC [Suspect]
     Active Substance: TALIMOGENE LAHERPAREPVEC
     Indication: MELANOMA RECURRENT
     Dosage: 4 ML, UNK
     Route: 026
     Dates: start: 20180604
  19. KARY UNI [Concomitant]
     Active Substance: PIRENOXINE
     Dosage: 1 GTT, UNK
     Route: 047
     Dates: start: 2009
  20. VOLTAREN [Concomitant]
     Active Substance: DICLOFENAC SODIUM
     Dosage: 1 UNK, UNK
     Route: 061
     Dates: start: 2017
  21. KETOPROFEN. [Concomitant]
     Active Substance: KETOPROFEN
     Dosage: 1 UNK, UNK
     Route: 061
     Dates: start: 2017
  22. BLOPRESS [Concomitant]
     Active Substance: CANDESARTAN CILEXETIL
     Dosage: 8 MG, UNK
     Route: 048
     Dates: start: 2007

REACTIONS (2)
  - Decreased appetite [Recovered/Resolved]
  - Malaise [Recovered/Resolved]

NARRATIVE: CASE EVENT DATE: 20180822
